FAERS Safety Report 13660653 (Version 1)
Quarter: 2017Q2

REPORT INFORMATION
  Report Type: Spontaneous
  Country: US (occurrence: US)
  Receive Date: 20170616
  Receipt Date: 20170616
  Transmission Date: 20170830
  Serious: Yes (Other)
  Sender: FDA-Public Use
  Company Number: US-PFIZER INC-2017262574

PATIENT
  Age: 74 Year
  Sex: Female
  Weight: 113 kg

DRUGS (6)
  1. ASPIRIN /00002701/ [Suspect]
     Active Substance: ASPIRIN
     Indication: PAIN
     Dosage: UNK
  2. ASPIRIN /00002701/ [Suspect]
     Active Substance: ASPIRIN
     Indication: FIBROMYALGIA
  3. IBUPROFEN. [Suspect]
     Active Substance: IBUPROFEN
     Indication: FIBROMYALGIA
  4. NAPROXEN. [Suspect]
     Active Substance: NAPROXEN
     Indication: PAIN
     Dosage: UNK
  5. NAPROXEN. [Suspect]
     Active Substance: NAPROXEN
     Indication: FIBROMYALGIA
  6. IBUPROFEN. [Suspect]
     Active Substance: IBUPROFEN
     Indication: PAIN
     Dosage: UNK

REACTIONS (1)
  - Renal impairment [Not Recovered/Not Resolved]

NARRATIVE: CASE EVENT DATE: 2002
